FAERS Safety Report 16630544 (Version 1)
Quarter: 2019Q3

REPORT INFORMATION
  Report Type: Spontaneous
  Country: US (occurrence: US)
  Receive Date: 20190725
  Receipt Date: 20190725
  Transmission Date: 20191004
  Serious: No
  Sender: FDA-Public Use
  Company Number: US-BAYER-2019-139748

PATIENT
  Age: 38 Year
  Sex: Female

DRUGS (2)
  1. ADEMPAS [Suspect]
     Active Substance: RIOCIGUAT
     Indication: SARCOIDOSIS
  2. ADEMPAS [Suspect]
     Active Substance: RIOCIGUAT
     Indication: CARDIAC FAILURE
     Dosage: 1.5 MG, TID
     Dates: start: 2019

REACTIONS (3)
  - Off label use [None]
  - Rash [None]
  - Product use in unapproved indication [None]

NARRATIVE: CASE EVENT DATE: 2019
